FAERS Safety Report 5202501-5 (Version None)
Quarter: 2006Q4

REPORT INFORMATION
  Report Type: 
  Country: None (occurrence: None)
  Receive Date: 20061016
  Receipt Date: 20060907
  Transmission Date: 20070319
  Serious: No
  Sender: FDA-Public Use
  Company Number: 2006SP003217

PATIENT
  Sex: Male

DRUGS (8)
  1. LUNESTA [Suspect]
     Dosage: ORAL
     Route: 048
  2. PROVIGIL [Suspect]
  3. OXYCONTIN [Suspect]
  4. PERCOCET [Suspect]
  5. LEXAPRO [Suspect]
  6. ST JOHN'S WORT [Suspect]
  7. GINKGO ^SYXYL^ [Suspect]
  8. ASCORBIC ACID [Suspect]

REACTIONS (2)
  - DRUG INTERACTION [None]
  - SOMNOLENCE [None]
